FAERS Safety Report 8138613-6 (Version None)
Quarter: 2012Q1

REPORT INFORMATION
  Report Type: 
  Country: None (occurrence: None)
  Receive Date: 20120215
  Receipt Date: 20120208
  Transmission Date: 20120608
  Serious: Yes (Hospitalization, Other)
  Sender: FDA-Public Use
  Company Number: US-BAYER-2011-031101

PATIENT
  Age: 24 Year
  Sex: Female
  Weight: 86.168 kg

DRUGS (3)
  1. ALBUTEROL [Concomitant]
     Indication: ASTHMA
     Route: 045
  2. MOTRIN [Concomitant]
     Dosage: UNK
     Dates: start: 20020101
  3. YAZ [Suspect]
     Indication: ACNE CYSTIC
     Dosage: UNK
     Dates: start: 20100501, end: 20101025

REACTIONS (6)
  - PULMONARY INFARCTION [None]
  - ANHEDONIA [None]
  - PULMONARY EMBOLISM [None]
  - PAIN [None]
  - ANXIETY [None]
  - ARRHYTHMIA [None]
